FAERS Safety Report 8326743-5 (Version None)
Quarter: 2012Q2

REPORT INFORMATION
  Report Type: 
  Country: None (occurrence: None)
  Receive Date: 20120501
  Receipt Date: 20120426
  Transmission Date: 20120825
  Serious: Yes (Other)
  Sender: FDA-Public Use
  Company Number: PHHY2012SK035822

PATIENT
  Age: 55 Year
  Sex: Female

DRUGS (2)
  1. CITALOPRAM [Suspect]
  2. ALPRAZOLAM [Concomitant]

REACTIONS (6)
  - VISUAL ACUITY REDUCED [None]
  - HYALOSIS ASTEROID [None]
  - CYSTOID MACULAR OEDEMA [None]
  - PARAESTHESIA ORAL [None]
  - FATIGUE [None]
  - OEDEMA PERIPHERAL [None]
